FAERS Safety Report 14169998 (Version 1)
Quarter: 2017Q4

REPORT INFORMATION
  Report Type: Report from Study
  Country: US (occurrence: US)
  Receive Date: 20171108
  Receipt Date: 20171108
  Transmission Date: 20180321
  Serious: Yes (Other)
  Sender: FDA-Public Use
  Company Number: US-EGALET US INC-US-2017EGA001038

PATIENT

DRUGS (1)
  1. SPRIX [Suspect]
     Active Substance: KETOROLAC TROMETHAMINE
     Indication: ARTHRALGIA
     Dosage: 1 SPRAY NASALLY EVERY 6 HOURS AS NEEDED
     Route: 045
     Dates: start: 20170606

REACTIONS (1)
  - Nasal abscess [Unknown]

NARRATIVE: CASE EVENT DATE: 20171024
